FAERS Safety Report 5518081-0 (Version None)
Quarter: 2007Q4

REPORT INFORMATION
  Report Type: 
  Country: None (occurrence: None)
  Receive Date: 20071113
  Receipt Date: 20071102
  Transmission Date: 20080405
  Serious: Yes (Hospitalization)
  Sender: FDA-Public Use
  Company Number: 2007AP001269

PATIENT
  Age: 44 Year
  Sex: Male

DRUGS (4)
  1. TERBINAFINE HCL [Suspect]
  2. AMLODIPINE [Concomitant]
  3. CARBIMAZOLE (CARBIMAZOLE) [Concomitant]
  4. DOXAZOSIN MESYLATE [Concomitant]

REACTIONS (3)
  - HAEMATEMESIS [None]
  - MALLORY-WEISS SYNDROME [None]
  - VOMITING [None]
